FAERS Safety Report 25576745 (Version 2)
Quarter: 2025Q3

REPORT INFORMATION
  Report Type: Spontaneous
  Country: IN (occurrence: IN)
  Receive Date: 20250718
  Receipt Date: 20250806
  Transmission Date: 20251021
  Serious: Yes (Death, Life-Threatening, Hospitalization)
  Sender: ACCORD
  Company Number: IN-Accord-494658

PATIENT
  Age: 52 Year
  Sex: Female

DRUGS (20)
  1. ETOPOSIDE [Suspect]
     Active Substance: ETOPOSIDE
     Indication: Rhabdomyosarcoma
     Dosage: DOSE-COMPRESSED, RECEIVED 2 CYCLES
  2. ADRIAMYCIN [Suspect]
     Active Substance: DOXORUBICIN HYDROCHLORIDE
     Indication: Rhabdomyosarcoma
     Dosage: DOSE-COMPRESSED, RECEIVED 2 CYCLES
  3. CYCLOPHOSPHAMIDE [Suspect]
     Active Substance: CYCLOPHOSPHAMIDE
     Indication: Rhabdomyosarcoma
     Dosage: DOSE-COMPRESSED, RECEIVED 2 CYCLES
  4. IFOSFAMIDE [Suspect]
     Active Substance: IFOSFAMIDE
     Indication: Rhabdomyosarcoma
     Dosage: DOSE-COMPRESSED, RECEIVED 2 CYCLES
  5. VINCRISTINE [Suspect]
     Active Substance: VINCRISTINE
     Indication: Rhabdomyosarcoma
     Dosage: DOSE-COMPRESSED, RECEIVED 2 CYCLES
  6. VINCRISTINE [Suspect]
     Active Substance: VINCRISTINE
     Indication: Lung neoplasm malignant
     Dosage: DOSE-COMPRESSED, RECEIVED 2 CYCLES
  7. VINCRISTINE [Suspect]
     Active Substance: VINCRISTINE
     Indication: Metastases to ovary
     Dosage: DOSE-COMPRESSED, RECEIVED 2 CYCLES
  8. VINCRISTINE [Suspect]
     Active Substance: VINCRISTINE
     Indication: Metastasis
     Dosage: DOSE-COMPRESSED, RECEIVED 2 CYCLES
  9. ADRIAMYCIN [Suspect]
     Active Substance: DOXORUBICIN HYDROCHLORIDE
     Indication: Lung neoplasm malignant
     Dosage: DOSE-COMPRESSED, RECEIVED 2 CYCLES
  10. ADRIAMYCIN [Suspect]
     Active Substance: DOXORUBICIN HYDROCHLORIDE
     Indication: Metastases to ovary
     Dosage: DOSE-COMPRESSED, RECEIVED 2 CYCLES
  11. ADRIAMYCIN [Suspect]
     Active Substance: DOXORUBICIN HYDROCHLORIDE
     Indication: Metastasis
     Dosage: DOSE-COMPRESSED, RECEIVED 2 CYCLES
  12. ETOPOSIDE [Suspect]
     Active Substance: ETOPOSIDE
     Indication: Lung neoplasm malignant
     Dosage: DOSE-COMPRESSED, RECEIVED 2 CYCLES
  13. ETOPOSIDE [Suspect]
     Active Substance: ETOPOSIDE
     Indication: Metastases to ovary
     Dosage: DOSE-COMPRESSED, RECEIVED 2 CYCLES
  14. ETOPOSIDE [Suspect]
     Active Substance: ETOPOSIDE
     Indication: Metastasis
     Dosage: DOSE-COMPRESSED, RECEIVED 2 CYCLES
  15. IFOSFAMIDE [Suspect]
     Active Substance: IFOSFAMIDE
     Indication: Lung neoplasm malignant
     Dosage: DOSE-COMPRESSED, RECEIVED 2 CYCLES
  16. IFOSFAMIDE [Suspect]
     Active Substance: IFOSFAMIDE
     Indication: Metastases to ovary
     Dosage: DOSE-COMPRESSED, RECEIVED 2 CYCLES
  17. IFOSFAMIDE [Suspect]
     Active Substance: IFOSFAMIDE
     Indication: Metastasis
     Dosage: DOSE-COMPRESSED, RECEIVED 2 CYCLES
  18. CYCLOPHOSPHAMIDE [Suspect]
     Active Substance: CYCLOPHOSPHAMIDE
     Indication: Lung neoplasm malignant
     Dosage: DOSE-COMPRESSED, RECEIVED 2 CYCLES
  19. CYCLOPHOSPHAMIDE [Suspect]
     Active Substance: CYCLOPHOSPHAMIDE
     Indication: Metastases to ovary
     Dosage: DOSE-COMPRESSED, RECEIVED 2 CYCLES
  20. CYCLOPHOSPHAMIDE [Suspect]
     Active Substance: CYCLOPHOSPHAMIDE
     Indication: Metastasis
     Dosage: DOSE-COMPRESSED, RECEIVED 2 CYCLES

REACTIONS (5)
  - Febrile neutropenia [Fatal]
  - Thrombocytopenia [Unknown]
  - Anaemia [Unknown]
  - Septic shock [Fatal]
  - Sepsis [Fatal]
